FAERS Safety Report 4620360-6 (Version None)
Quarter: 2005Q1

REPORT INFORMATION
  Report Type: 
  Country: None (occurrence: None)
  Receive Date: 20050328
  Receipt Date: 20050316
  Transmission Date: 20050727
  Serious: Yes (Hospitalization)
  Sender: FDA-Public Use
  Company Number: JP-MERCK-0503USA03585

PATIENT
  Age: 70 Year
  Sex: Female

DRUGS (3)
  1. PEPCID [Suspect]
     Route: 042
     Dates: start: 20050201, end: 20050226
  2. BAKTAR [Suspect]
     Route: 048
     Dates: end: 20050226
  3. PREDONINE [Concomitant]
     Route: 065
     Dates: start: 20050221

REACTIONS (3)
  - INTERSTITIAL LUNG DISEASE [None]
  - LEUKOPENIA [None]
  - THROMBOCYTOPENIA [None]
